FAERS Safety Report 5530915-2 (Version None)
Quarter: 2007Q4

REPORT INFORMATION
  Report Type: 
  Country: None (occurrence: None)
  Receive Date: 20071130
  Receipt Date: 20071126
  Transmission Date: 20080405
  Serious: Yes (Hospitalization, Other)
  Sender: FDA-Public Use
  Company Number: US-PFIZER INC-2007083432

PATIENT
  Sex: Female
  Weight: 68 kg

DRUGS (3)
  1. EXUBERA [Suspect]
     Indication: TYPE 2 DIABETES MELLITUS
     Route: 055
     Dates: start: 20070901, end: 20070101
  2. BYETTA [Concomitant]
  3. METFORMIN HCL [Concomitant]

REACTIONS (2)
  - CHEST PAIN [None]
  - RESPIRATORY DISTRESS [None]
